FAERS Safety Report 5119914-2 (Version None)
Quarter: 2006Q3

REPORT INFORMATION
  Report Type: 
  Country: None (occurrence: None)
  Receive Date: 20060927
  Receipt Date: 20060919
  Transmission Date: 20061208
  Serious: Yes (Death, Hospitalization)
  Sender: FDA-Public Use
  Company Number: HQWYE928120SEP06

PATIENT

DRUGS (4)
  1. CORDARONE [Suspect]
     Indication: ACUTE MYOCARDIAL INFARCTION
     Dosage: SEE IMAGE
     Route: 042
  2. CORDARONE [Suspect]
     Indication: ATRIAL FIBRILLATION
     Dosage: SEE IMAGE
     Route: 042
  3. CORDARONE [Suspect]
     Indication: ACUTE MYOCARDIAL INFARCTION
     Dosage: 600 MG DAILY, 1-2 WEEKS AFTER STABLE DISEASE, 200 MG 1X PER 1 DAY
     Route: 048
  4. CORDARONE [Suspect]
     Indication: ATRIAL FIBRILLATION
     Dosage: 600 MG DAILY, 1-2 WEEKS AFTER STABLE DISEASE, 200 MG 1X PER 1 DAY
     Route: 048

REACTIONS (1)
  - CARDIOGENIC SHOCK [None]
